FAERS Safety Report 21597306 (Version 1)
Quarter: 2022Q4

REPORT INFORMATION
  Report Type: Spontaneous
  Country: US (occurrence: US)
  Receive Date: 20221115
  Receipt Date: 20221115
  Transmission Date: 20230113
  Serious: No
  Sender: FDA-Public Use
  Company Number: US-AMNEAL PHARMACEUTICALS-2022-AMRX-01653

PATIENT
  Sex: Male
  Weight: 81.633 kg

DRUGS (3)
  1. ISOTRETINOIN [Suspect]
     Active Substance: ISOTRETINOIN
     Indication: Acne cystic
     Dosage: 40MG CAPSULE
     Route: 065
     Dates: start: 202112, end: 20220506
  2. ISOTRETINOIN [Suspect]
     Active Substance: ISOTRETINOIN
     Dosage: 30MG CAPSULE
     Route: 065
  3. ISOTRETINOIN [Suspect]
     Active Substance: ISOTRETINOIN
     Dosage: 20MG CAPSULE
     Route: 065

REACTIONS (2)
  - Hidradenitis [Recovering/Resolving]
  - Condition aggravated [Recovering/Resolving]
